FAERS Safety Report 7834065-1 (Version None)
Quarter: 2011Q4

REPORT INFORMATION
  Report Type: 
  Country: None (occurrence: None)
  Receive Date: 20111024
  Receipt Date: 20111024
  Transmission Date: 20120403
  Serious: Yes (Other)
  Sender: FDA-Public Use
  Company Number: None

PATIENT
  Sex: Female
  Weight: 54.431 kg

DRUGS (1)
  1. DEPO-MEDROL [Suspect]
     Indication: ANALGESIC THERAPY
     Dates: start: 20110929, end: 20110929

REACTIONS (1)
  - MYOCLONUS [None]
